FAERS Safety Report 5680892-9 (Version None)
Quarter: 2008Q1

REPORT INFORMATION
  Report Type: 
  Country: None (occurrence: None)
  Receive Date: 20080326
  Receipt Date: 20080321
  Transmission Date: 20080703
  Serious: Yes (Other)
  Sender: FDA-Public Use
  Company Number: US-GENENTECH-256903

PATIENT
  Sex: Male
  Weight: 129.25 kg

DRUGS (10)
  1. RAPTIVA [Suspect]
     Indication: DRUG USE FOR UNKNOWN INDICATION
     Dosage: 0.9 ML, SINGLE
     Route: 058
     Dates: start: 20070601
  2. RAPTIVA [Suspect]
     Dosage: 1.3 ML, 1/WEEK
     Route: 058
     Dates: end: 20070917
  3. RAPTIVA [Suspect]
     Dosage: 0.8 ML, X2
     Route: 058
  4. RAPTIVA [Suspect]
     Dosage: 0.4 ML, X2
     Route: 058
  5. RAPTIVA [Suspect]
     Dosage: 0.2 ML, SINGLE
     Route: 058
     Dates: end: 20071023
  6. METOPROLOL TARTRATE [Concomitant]
     Indication: DRUG USE FOR UNKNOWN INDICATION
     Dosage: 50 MG, UNK
     Dates: end: 20070901
  7. ASPIRIN [Concomitant]
     Indication: DRUG USE FOR UNKNOWN INDICATION
     Dosage: 81 MG, QD
  8. CLOBEX [Concomitant]
     Indication: DRUG USE FOR UNKNOWN INDICATION
  9. DOVONEX [Concomitant]
     Indication: DRUG USE FOR UNKNOWN INDICATION
  10. PROTOPIC [Concomitant]
     Indication: DRUG USE FOR UNKNOWN INDICATION

REACTIONS (3)
  - CHOLELITHIASIS [None]
  - HEPATITIS C [None]
  - LIVER FUNCTION TEST ABNORMAL [None]
